FAERS Safety Report 15955344 (Version 3)
Quarter: 2019Q1

REPORT INFORMATION
  Report Type: Spontaneous
  Country: US (occurrence: US)
  Receive Date: 20190213
  Receipt Date: 20190221
  Transmission Date: 20190417
  Serious: No
  Sender: FDA-Public Use
  Company Number: US-CONCORDIA PHARMACEUTICALS INC.-GSH201902-000246

PATIENT
  Age: 51 Year
  Sex: Female

DRUGS (15)
  1. PRAZOSIN. [Suspect]
     Active Substance: PRAZOSIN
     Dosage: DECREASED AT BEDTIME
  2. KB220Z [Concomitant]
     Dosage: BEGAN THE KB220Z AGAIN
  3. CLONIDINE. [Suspect]
     Active Substance: CLONIDINE
     Indication: POST-TRAUMATIC STRESS DISORDER
     Dosage: AT BEDTIME
  4. CLONIDINE. [Suspect]
     Active Substance: CLONIDINE
     Indication: ATTENTION DEFICIT/HYPERACTIVITY DISORDER
     Dosage: TWO PILLS AT BEDTIME (INCREASED)
  5. PRAZOSIN. [Suspect]
     Active Substance: PRAZOSIN
     Dosage: AT BEDTIME (INCREASED)
  6. PRAZOSIN. [Suspect]
     Active Substance: PRAZOSIN
     Indication: POST-TRAUMATIC STRESS DISORDER
     Dosage: AT BEDTIME
  7. ADDERALL [Suspect]
     Active Substance: AMPHETAMINE ASPARTATE\AMPHETAMINE SULFATE\DEXTROAMPHETAMINE SACCHARATE\DEXTROAMPHETAMINE SULFATE
     Indication: POST-TRAUMATIC STRESS DISORDER
     Dosage: IN THE MORNING (INCREASED)
  8. ADDERALL [Suspect]
     Active Substance: AMPHETAMINE ASPARTATE\AMPHETAMINE SULFATE\DEXTROAMPHETAMINE SACCHARATE\DEXTROAMPHETAMINE SULFATE
     Dosage: DECREASED
  9. LITHIUM. [Suspect]
     Active Substance: LITHIUM
     Indication: POST-TRAUMATIC STRESS DISORDER
  10. KB220Z [Concomitant]
     Dosage: THREE KB220Z A DAY
  11. METFORMIN [Concomitant]
     Active Substance: METFORMIN HYDROCHLORIDE
  12. KB220Z [Concomitant]
     Indication: POST-TRAUMATIC STRESS DISORDER
     Dosage: DECREASED TO ONE PILL IN THE MORNING AND TWO AT BEDTIME
  13. KB220Z [Concomitant]
     Dosage: ONE IN THE MORNING AND ONE AT BEDTIME
  14. KB220Z [Concomitant]
     Dosage: FOUR A DAY
  15. LITHIUM. [Suspect]
     Active Substance: LITHIUM

REACTIONS (1)
  - Drug ineffective [Unknown]
